FAERS Safety Report 6334704-0 (Version None)
Quarter: 2009Q3

REPORT INFORMATION
  Report Type: 
  Country: None (occurrence: None)
  Receive Date: 20090831
  Receipt Date: 20090818
  Transmission Date: 20100115
  Serious: Yes (Other)
  Sender: FDA-Public Use
  Company Number: US-TYCO HEALTHCARE/MALLINCKRODT-T200900933

PATIENT
  Sex: Female

DRUGS (5)
  1. OPTIMARK [Suspect]
     Indication: NUCLEAR MAGNETIC RESONANCE IMAGING BRAIN
     Dosage: 1 ML, SINGLE
     Dates: start: 20061023, end: 20061023
  2. MAGNEVIST [Suspect]
     Indication: NUCLEAR MAGNETIC RESONANCE IMAGING BRAIN
     Dosage: UNK
     Dates: start: 20050727, end: 20050727
  3. MAGNEVIST [Suspect]
     Indication: ANGIOGRAM
     Dosage: UNK
     Dates: start: 20050727, end: 20050727
  4. MAGNEVIST [Suspect]
     Indication: ARTERIOGRAM RENAL
     Dosage: UNK
     Dates: start: 20050810, end: 20050810
  5. GADOLINIUM [Suspect]
     Indication: NUCLEAR MAGNETIC RESONANCE IMAGING BRAIN
     Dosage: UNK
     Dates: start: 20060205, end: 20060205

REACTIONS (17)
  - ARTERIAL OCCLUSIVE DISEASE [None]
  - CONVULSION [None]
  - DEEP VEIN THROMBOSIS [None]
  - ENCEPHALOMALACIA [None]
  - EROSIVE DUODENITIS [None]
  - HAEMORRHAGIC STROKE [None]
  - INTRA-ABDOMINAL HAEMATOMA [None]
  - METABOLIC ENCEPHALOPATHY [None]
  - NEPHROGENIC SYSTEMIC FIBROSIS [None]
  - OESOPHAGEAL ULCER [None]
  - OESOPHAGITIS [None]
  - PNEUMONIA [None]
  - PULMONARY OEDEMA [None]
  - RENAL FAILURE CHRONIC [None]
  - RESPIRATORY FAILURE [None]
  - SPLENIC INFARCTION [None]
  - URINARY TRACT INFECTION [None]
